FAERS Safety Report 6081908-0 (Version None)
Quarter: 2009Q1

REPORT INFORMATION
  Report Type: 
  Country: None (occurrence: None)
  Receive Date: 20090218
  Receipt Date: 20080520
  Transmission Date: 20090719
  Serious: No
  Sender: FDA-Public Use
  Company Number: US-BRISTOL-MYERS SQUIBB COMPANY-14201743

PATIENT

DRUGS (1)
  1. GLUCOPHAGE [Suspect]
     Indication: POLYCYSTIC OVARIES
     Dates: start: 20040101

REACTIONS (1)
  - INSOMNIA [None]
